FAERS Safety Report 5468298-9 (Version None)
Quarter: 2007Q3

REPORT INFORMATION
  Report Type: 
  Country: None (occurrence: None)
  Receive Date: 20070924
  Receipt Date: 20070913
  Transmission Date: 20080115
  Serious: Yes (Other)
  Sender: FDA-Public Use
  Company Number: GXKR2007CH07846

PATIENT
  Sex: Female

DRUGS (1)
  1. CLOPIN ECO (NGX)(CLOZAPINE) TABLET [Suspect]
     Dosage: ORAL
     Route: 048

REACTIONS (2)
  - PLATELET COUNT DECREASED [None]
  - SPLENOMEGALY [None]
